FAERS Safety Report 9030280 (Version 4)
Quarter: 2013Q3

REPORT INFORMATION
  Report Type: Report from Study
  Country: US (occurrence: US)
  Receive Date: 20130122
  Receipt Date: 20130809
  Transmission Date: 20140515
  Serious: Yes (Hospitalization, Disabling, Other)
  Sender: FDA-Public Use
  Company Number: US-ACTELION-A-US2013-77713

PATIENT
  Age: 52 Year
  Sex: Female

DRUGS (3)
  1. TRACLEER [Suspect]
     Indication: PULMONARY ARTERIAL HYPERTENSION
     Dosage: UNK
     Route: 048
  2. ADCIRCA [Concomitant]
  3. PLAVIX [Concomitant]

REACTIONS (5)
  - Pain in extremity [Recovering/Resolving]
  - Pulmonary arterial hypertension [Recovering/Resolving]
  - Leg amputation [Recovering/Resolving]
  - Pain [Unknown]
  - Drug dose omission [Unknown]
